FAERS Safety Report 11802127 (Version 1)
Quarter: 2015Q4

REPORT INFORMATION
  Report Type: Spontaneous
  Country: US (occurrence: US)
  Receive Date: 20151204
  Receipt Date: 20151204
  Transmission Date: 20160305
  Serious: Yes (Other)
  Sender: FDA-Public Use
  Company Number: US-PFIZER INC-2015409766

PATIENT
  Age: 53 Year
  Sex: Female
  Weight: 61 kg

DRUGS (1)
  1. LYRICA [Suspect]
     Active Substance: PREGABALIN
     Indication: PAIN
     Dosage: 200 MG, 3X/DAY
     Route: 048

REACTIONS (3)
  - Cerebrovascular accident [Unknown]
  - Tooth loss [Unknown]
  - Stomatitis [Not Recovered/Not Resolved]

NARRATIVE: CASE EVENT DATE: 2012
